FAERS Safety Report 20504081 (Version 1)
Quarter: 2022Q1

REPORT INFORMATION
  Report Type: Report from Study
  Country: US (occurrence: US)
  Receive Date: 20220222
  Receipt Date: 20220222
  Transmission Date: 20220424
  Serious: Yes (Death, Other)
  Sender: FDA-Public Use
  Company Number: US-PFIZER INC-202200277171

PATIENT
  Age: 44 Year
  Sex: Female
  Weight: 68.027 kg

DRUGS (3)
  1. SILDENAFIL CITRATE [Suspect]
     Active Substance: SILDENAFIL CITRATE
     Dosage: UNK
  2. TREPROSTINIL [Suspect]
     Active Substance: TREPROSTINIL
     Indication: Pulmonary arterial hypertension
     Dosage: 0.6 MG/ML, (18-54 MCG 3-9 BREATHS QID) 4X/DAY
     Route: 045
     Dates: start: 20201109
  3. AMBRISENTAN [Suspect]
     Active Substance: AMBRISENTAN
     Dosage: UNK

REACTIONS (2)
  - Death [Fatal]
  - Seizure [Unknown]

NARRATIVE: CASE EVENT DATE: 20220126
